FAERS Safety Report 19944342 (Version 1)
Quarter: 2021Q4

REPORT INFORMATION
  Report Type: Spontaneous
  Country: NI (occurrence: NI)
  Receive Date: 20211012
  Receipt Date: 20211012
  Transmission Date: 20220303
  Serious: Yes (Death)
  Sender: FDA-Public Use
  Company Number: NI-ROCHE-2927060

PATIENT

DRUGS (1)
  1. TOCILIZUMAB [Suspect]
     Active Substance: TOCILIZUMAB
     Indication: Product used for unknown indication
     Dosage: TOCILIZUMAB 400 MG/ 20ML
     Route: 065

REACTIONS (3)
  - Product counterfeit [Unknown]
  - Product contamination physical [Unknown]
  - Death [Fatal]
